FAERS Safety Report 21230220 (Version 1)
Quarter: 2022Q3

REPORT INFORMATION
  Report Type: Report from Study
  Country: US (occurrence: US)
  Receive Date: 20220818
  Receipt Date: 20220818
  Transmission Date: 20221027
  Serious: Yes (Other)
  Sender: FDA-Public Use
  Company Number: US-BAYER-2022A112508

PATIENT
  Age: 54 Year
  Sex: Male

DRUGS (1)
  1. STIVARGA [Suspect]
     Active Substance: REGORAFENIB
     Indication: Colorectal cancer
     Dosage: 160 MG, QD FOR THE FIRST 21 DAYS OUT OF 28 DAY CYCLE. TAKE AFTER A LOW-FAT MEAL
     Route: 048
     Dates: start: 20220729

REACTIONS (3)
  - Neuropathy peripheral [None]
  - Blister [Recovering/Resolving]
  - Memory impairment [None]

NARRATIVE: CASE EVENT DATE: 20220805
